FAERS Safety Report 6696155-9 (Version None)
Quarter: 2010Q2

REPORT INFORMATION
  Report Type: 
  Country: None (occurrence: None)
  Receive Date: 20100426
  Receipt Date: 20100415
  Transmission Date: 20101027
  Serious: Yes (Hospitalization)
  Sender: FDA-Public Use
  Company Number: FR-AMGEN-US404541

PATIENT
  Sex: Male

DRUGS (1)
  1. ENBREL [Suspect]
     Indication: ANKYLOSING SPONDYLITIS
     Dosage: UNKNOWN
     Route: 058
     Dates: start: 20070101, end: 20100101

REACTIONS (7)
  - APHASIA [None]
  - CHEST PAIN [None]
  - DEEP VEIN THROMBOSIS [None]
  - HEPATIC STEATOSIS [None]
  - ISCHAEMIC STROKE [None]
  - PARADOXICAL EMBOLISM [None]
  - PULMONARY EMBOLISM [None]
